FAERS Safety Report 9099682 (Version 2)
Quarter: 2013Q1

REPORT INFORMATION
  Report Type: Spontaneous
  Country: MX (occurrence: MX)
  Receive Date: 20130214
  Receipt Date: 20130308
  Transmission Date: 20140127
  Serious: Yes (Hospitalization, Other)
  Sender: FDA-Public Use
  Company Number: PHHY2012MX085175

PATIENT
  Age: 60 Year
  Sex: Female

DRUGS (4)
  1. DIOVAN [Suspect]
     Indication: HYPERTENSION
     Dosage: 3 DF (80 MG), DAILY
     Route: 048
     Dates: start: 200602
  2. DIOVAN [Suspect]
     Dosage: UNK UKN, UNK
  3. LEVOTHYROXINE [Concomitant]
     Indication: THYROID DISORDER
     Dosage: 1 DF, DAILY
     Dates: start: 200802
  4. LOSARTAN [Concomitant]

REACTIONS (5)
  - Arthropathy [Not Recovered/Not Resolved]
  - Cardiomegaly [Not Recovered/Not Resolved]
  - Influenza [Not Recovered/Not Resolved]
  - Nasopharyngitis [Unknown]
  - Blood pressure inadequately controlled [Recovered/Resolved]
